FAERS Safety Report 5016199-2 (Version None)
Quarter: 2006Q2

REPORT INFORMATION
  Report Type: 
  Country: None (occurrence: None)
  Receive Date: 20060414
  Receipt Date: 20060127
  Transmission Date: 20061013
  Serious: No
  Sender: FDA-Public Use
  Company Number: 2006SP000498

PATIENT
  Age: 47 Year
  Sex: Female
  Weight: 91.173 kg

DRUGS (6)
  1. LUNESTA [Suspect]
     Indication: INSOMNIA
     Dosage: 2 MG HS ORAL
     Route: 048
     Dates: start: 20060123, end: 20060124
  2. NEXIUM [Concomitant]
  3. METOCLOPRAMIDE [Concomitant]
  4. NEORAL [Concomitant]
  5. SYNTHROID [Concomitant]
  6. BUDESONIDE [Concomitant]

REACTIONS (3)
  - ABDOMINAL PAIN UPPER [None]
  - DYSGEUSIA [None]
  - HEADACHE [None]
